FAERS Safety Report 15982427 (Version 1)
Quarter: 2019Q1

REPORT INFORMATION
  Report Type: Spontaneous
  Country: US (occurrence: US)
  Receive Date: 20190219
  Receipt Date: 20190219
  Transmission Date: 20190418
  Serious: No
  Sender: FDA-Public Use
  Company Number: US-ENDO PHARMACEUTICALS INC-2018-042790

PATIENT
  Age: 51 Year
  Sex: Female
  Weight: 90.7 kg

DRUGS (2)
  1. XIAFLEX [Suspect]
     Active Substance: COLLAGENASE CLOSTRIDIUM HISTOLYTICUM
     Indication: DUPUYTREN^S CONTRACTURE
     Dosage: UNK MG, SINGLE (RIGHT HAND, PINKY AND RING FINGER)
     Route: 026
     Dates: start: 201810, end: 201810
  2. VERAPAMIL HYDROCHLORIDE. [Concomitant]
     Active Substance: VERAPAMIL HYDROCHLORIDE
     Indication: PRODUCT USED FOR UNKNOWN INDICATION

REACTIONS (5)
  - Hypoaesthesia [Unknown]
  - Musculoskeletal stiffness [Unknown]
  - Pain in extremity [Not Recovered/Not Resolved]
  - Axillary mass [Unknown]
  - Burning sensation [Unknown]

NARRATIVE: CASE EVENT DATE: 201810
